FAERS Safety Report 5549545-1 (Version None)
Quarter: 2007Q4

REPORT INFORMATION
  Report Type: 
  Country: None (occurrence: None)
  Receive Date: 20071128
  Receipt Date: 20070831
  Transmission Date: 20080405
  Serious: Yes (Other)
  Sender: FDA-Public Use
  Company Number: 2007029888

PATIENT
  Age: 63 Year
  Sex: Male
  Weight: 88.5 kg

DRUGS (9)
  1. EXUBERA [Suspect]
     Indication: TYPE 2 DIABETES MELLITUS
     Dosage: 8MG BRKFST, 5MGLUNCH, 9MG DINNER (3 IN 1 D), INHALATION
     Route: 055
     Dates: start: 20061127, end: 20070410
  2. LANTUS [Concomitant]
  3. METFORMIN XR (METFORMIN) [Concomitant]
  4. GEMFIBROZIL [Concomitant]
  5. ISOSORBIDE (ISOSORBIDE) [Concomitant]
  6. ENALAPRIL MALEATE [Concomitant]
  7. SIMVASTATIN [Concomitant]
  8. GLIPIZIDE [Concomitant]
  9. NOVOLOG [Concomitant]

REACTIONS (1)
  - FORCED EXPIRATORY VOLUME DECREASED [None]
